FAERS Safety Report 5021269-9 (Version None)
Quarter: 2006Q2

REPORT INFORMATION
  Report Type: 
  Country: None (occurrence: None)
  Receive Date: 20060608
  Receipt Date: 20060117
  Transmission Date: 20061013
  Serious: Yes (Hospitalization)
  Sender: FDA-Public Use
  Company Number: US-GLAXOSMITHKLINE-A0589674A

PATIENT
  Age: 27 Year
  Sex: Female
  Weight: 72.3 kg

DRUGS (2)
  1. LAMICTAL [Suspect]
     Indication: BIPOLAR DISORDER
     Dosage: 75MG PER DAY
     Route: 048
  2. EFFEXOR [Concomitant]
     Route: 048

REACTIONS (10)
  - BALANCE DISORDER [None]
  - CONFUSIONAL STATE [None]
  - HALLUCINATION [None]
  - HALLUCINATION, AUDITORY [None]
  - MEDICATION ERROR [None]
  - NORMAL DELIVERY [None]
  - ORAL MUCOSAL BLISTERING [None]
  - PRURITUS [None]
  - RASH [None]
  - STRESS [None]
